FAERS Safety Report 16434607 (Version 3)
Quarter: 2019Q3

REPORT INFORMATION
  Report Type: Report from Study
  Country: US (occurrence: US)
  Receive Date: 20190614
  Receipt Date: 20190716
  Transmission Date: 20191004
  Serious: Yes (Death, Hospitalization)
  Sender: FDA-Public Use
  Company Number: US-EXELIXIS-XL18419021762

PATIENT
  Age: 66 Year
  Sex: Female
  Weight: 49.4 kg

DRUGS (1)
  1. XL184 [Suspect]
     Active Substance: CABOZANTINIB
     Dosage: 60 MG, QD
     Route: 048
     Dates: start: 20190429, end: 20190513

REACTIONS (4)
  - Vaginal haemorrhage [Recovered/Resolved]
  - Embolism [Recovered/Resolved with Sequelae]
  - Disease progression [Fatal]
  - Pleuritic pain [Unknown]

NARRATIVE: CASE EVENT DATE: 20190513
